FAERS Safety Report 5412977-6 (Version None)
Quarter: 2007Q3

REPORT INFORMATION
  Report Type: 
  Country: None (occurrence: None)
  Receive Date: 20070809
  Receipt Date: 20070730
  Transmission Date: 20080115
  Serious: No
  Sender: FDA-Public Use
  Company Number: E3810-01045-SPO-JP

PATIENT
  Age: 67 Year
  Sex: Male

DRUGS (7)
  1. RABEPRAZOLE SODIUM [Suspect]
     Indication: DUODENAL ULCER
     Dosage: 20 MG, 1 IN 1 D, ORAL
     Route: 048
     Dates: start: 20070521, end: 20070625
  2. PRAVASTATIN [Concomitant]
  3. BUFFERIN [Concomitant]
  4. URINORM (BENZBROMARONE) [Concomitant]
  5. PERSANTIN [Concomitant]
  6. MARZULENE (SODIUM GUALENATE) [Concomitant]
  7. LEVOFLOXACIN [Concomitant]

REACTIONS (2)
  - NECK PAIN [None]
  - PAIN IN EXTREMITY [None]
